FAERS Safety Report 8619990 (Version 2)
Quarter: 2012Q4

REPORT INFORMATION
  Report Type: Spontaneous
  Country: CA (occurrence: None)
  Receive Date: 20120524
  Receipt Date: 20120910
  Transmission Date: 20130627
  Serious: Yes (Other)
  Sender: FDA-Public Use
  Company Number: 2012032339

PATIENT
  Age: 38 Year
  Sex: Male

DRUGS (3)
  1. PRIVIGEN [Suspect]
     Indication: STREPTOCOCCAL TOXIC SHOCK SYNDROME
     Dosage: TOTAL, 1/4 FRACTION
     Route: 042
     Dates: start: 20120318, end: 20120318
  2. PRIVIGEN [Suspect]
     Indication: STREPTOCOCCAL TOXIC SHOCK SYNDROME
     Dosage: TOTAL, 1/4 FRACTION
     Route: 042
     Dates: start: 20120318, end: 20120318
  3. PRIVIGEN [Suspect]
     Indication: STREPTOCOCCAL TOXIC SHOCK SYNDROME
     Dosage: total, 1/4 fracttion
     Route: 042
     Dates: start: 20120318, end: 20120318

REACTIONS (4)
  - Streptococcal sepsis [None]
  - Septic shock [None]
  - Pyrexia [None]
  - Pyrexia [None]
